FAERS Safety Report 17016462 (Version 1)
Quarter: 2019Q4

REPORT INFORMATION
  Report Type: Spontaneous
  Country: US (occurrence: US)
  Receive Date: 20191109
  Receipt Date: 20191109
  Transmission Date: 20200122
  Serious: No
  Sender: FDA-Public Use
  Company Number: None

PATIENT
  Age: 65 Year
  Sex: Female
  Weight: 87.75 kg

DRUGS (5)
  1. VITAFUSION WOMEN^S VITAMINS [Concomitant]
  2. VITAFUSION D3 [Concomitant]
  3. ICY HOT WITH LIDOCAINE [Suspect]
     Active Substance: LIDOCAINE\MENTHOL
     Indication: MUSCLE STRAIN
  4. TYLENOL REGULAR STRENGTH [Concomitant]
     Active Substance: ACETAMINOPHEN
  5. VITAFUSION FIBRE [Concomitant]

REACTIONS (5)
  - Application site rash [None]
  - Application site pain [None]
  - Rash erythematous [None]
  - Rash papular [None]
  - Rash pruritic [None]

NARRATIVE: CASE EVENT DATE: 20191107
